FAERS Safety Report 10971413 (Version 2)
Quarter: 2015Q3

REPORT INFORMATION
  Report Type: Spontaneous
  Country: IT (occurrence: IT)
  Receive Date: 20150331
  Receipt Date: 20150810
  Transmission Date: 20151125
  Serious: Yes (Hospitalization)
  Sender: FDA-Public Use
  Company Number: IT-BAYER-2015-067682

PATIENT
  Age: 73 Year
  Sex: Male

DRUGS (2)
  1. MINIAS [Concomitant]
     Active Substance: LORMETAZEPAM
     Dosage: 1 MG, UNK
  2. CIPROFLOXACIN. [Suspect]
     Active Substance: CIPROFLOXACIN
     Dosage: 1 G, QD
     Route: 048
     Dates: start: 20150307, end: 20150318

REACTIONS (2)
  - Drug ineffective [Recovering/Resolving]
  - Sepsis [Recovering/Resolving]

NARRATIVE: CASE EVENT DATE: 20150319
